FAERS Safety Report 10230424 (Version 1)
Quarter: 2014Q2

REPORT INFORMATION
  Report Type: Spontaneous
  Country: US (occurrence: US)
  Receive Date: 20140611
  Receipt Date: 20140611
  Transmission Date: 20141212
  Serious: No
  Sender: FDA-Public Use
  Company Number: US-INCYTE CORPORATION-2014IN000688

PATIENT
  Sex: Male
  Weight: 70.3 kg

DRUGS (9)
  1. JAKAFI [Suspect]
     Indication: MYELOFIBROSIS
     Dosage: 15 MG, BID (10MG AND 5MG)
     Route: 048
     Dates: start: 20131107
  2. VITAMIN D                          /00107901/ [Concomitant]
  3. CALTRATE                           /00944201/ [Concomitant]
  4. MULTIVITAMINS [Concomitant]
  5. WARFARIN [Concomitant]
  6. METOPROLOL [Concomitant]
  7. PREDNISONE [Concomitant]
  8. MULTAQ [Concomitant]
  9. FOSAMAX [Concomitant]

REACTIONS (2)
  - Oedema peripheral [Unknown]
  - Rash [Unknown]
